FAERS Safety Report 8035407 (Version 2)
Quarter: 2012Q4

REPORT INFORMATION
  Report Type: 
  Country: US (occurrence: US)
  Receive Date: 20110714
  Receipt Date: 20121130
  Transmission Date: 20130627
  Serious: Yes (Hospitalization)
  Sender: FDA-Public Use
  Company Number: US-JNJFOC-20110703435

PATIENT
  Age: 37 Year
  Sex: Female

DRUGS (13)
  1. ACETAMINOPHEN [Suspect]
     Route: 048
  2. ACETAMINOPHEN [Suspect]
     Indication: PRODUCT USED FOR UNKNOWN INDICATION
     Dosage: 1000 to 1500 mg (2 to 3 of 500 mg)
     Route: 048
     Dates: start: 20071025
  3. VITAMINS NOS [Concomitant]
     Indication: VEIN DISORDER
     Route: 065
     Dates: start: 20071025
  4. FESO4 [Concomitant]
     Route: 048
  5. FLEXERIL [Concomitant]
     Route: 048
     Dates: start: 20071025
  6. PAXIL [Concomitant]
     Route: 048
     Dates: start: 20071025
  7. PHENERGAN [Concomitant]
     Route: 048
     Dates: start: 20071025
  8. KCL [Concomitant]
     Route: 048
     Dates: start: 20071025
  9. SINGULAIR [Concomitant]
     Route: 048
     Dates: start: 20071025
  10. TUMS [Concomitant]
     Route: 048
     Dates: start: 20071025
  11. XANAX [Concomitant]
     Route: 048
     Dates: start: 20071025
  12. DILAUDID [Concomitant]
     Dosage: 6 to 8 hrs
     Route: 048
     Dates: start: 20071025
  13. MULTIVITAMINS [Concomitant]
     Route: 065
     Dates: start: 20071025

REACTIONS (2)
  - Intentional overdose [Recovering/Resolving]
  - Liver injury [Recovering/Resolving]
